FAERS Safety Report 6165520-0 (Version None)
Quarter: 2009Q2

REPORT INFORMATION
  Report Type: 
  Country: None (occurrence: None)
  Receive Date: 20090423
  Receipt Date: 20080723
  Transmission Date: 20091009
  Serious: Yes (Other)
  Sender: FDA-Public Use
  Company Number: US-SOLVAY-00208003152

PATIENT
  Age: 2 Year
  Sex: Male
  Weight: 21 kg

DRUGS (3)
  1. INJECTABLE TESTOSTERONE [Concomitant]
     Indication: ILL-DEFINED DISORDER
     Dosage: DAILY DOSE:  UNKNOWN
     Route: 030
  2. ANDROGEL [Suspect]
     Indication: ACCIDENTAL EXPOSURE
     Dosage: DAILY DOSE:  UNKNOWN
     Route: 062
     Dates: end: 20070101
  3. ANDROGEL [Suspect]
     Dosage: DAILY DOSE:  UNKNOWN
     Route: 062
     Dates: start: 20080101

REACTIONS (6)
  - BLOOD TESTOSTERONE INCREASED [None]
  - BODY HEIGHT ABOVE NORMAL [None]
  - BONE DISORDER [None]
  - GENITAL DISORDER MALE [None]
  - PENIS DISORDER [None]
  - PRECOCIOUS PUBERTY [None]
